FAERS Safety Report 9462276 (Version 1)
Quarter: 2013Q3

REPORT INFORMATION
  Report Type: Spontaneous
  Country: US (occurrence: US)
  Receive Date: 20130816
  Receipt Date: 20130816
  Transmission Date: 20140515
  Serious: Yes (Other)
  Sender: FDA-Public Use
  Company Number: US-JNJFOC-20120701847

PATIENT
  Sex: Female

DRUGS (5)
  1. TOPAMAX [Suspect]
     Indication: STRESS
     Route: 048
     Dates: start: 200611, end: 200705
  2. TOPAMAX [Suspect]
     Indication: DEPRESSION
     Route: 048
     Dates: start: 200611, end: 200705
  3. TOPAMAX [Suspect]
     Indication: MIGRAINE
     Route: 048
     Dates: start: 200611, end: 200705
  4. DEPO-PROVERA [Suspect]
     Indication: CONTRACEPTION
     Route: 065
  5. ACETAMINOPHEN [Suspect]
     Indication: PRODUCT USED FOR UNKNOWN INDICATION
     Route: 065

REACTIONS (5)
  - Exposure during pregnancy [Recovered/Resolved]
  - Depression [Unknown]
  - Stress [Unknown]
  - Emotional disorder [Unknown]
  - Anxiety [Unknown]
